FAERS Safety Report 9614494 (Version 2)
Quarter: 2013Q4

REPORT INFORMATION
  Report Type: Report from Study
  Country: CA (occurrence: CA)
  Receive Date: 20131011
  Receipt Date: 20131112
  Transmission Date: 20140711
  Serious: Yes (Other)
  Sender: FDA-Public Use
  Company Number: CA-ROCHE-1287651

PATIENT
  Sex: Female
  Weight: 70 kg

DRUGS (18)
  1. ACTEMRA [Suspect]
     Indication: RHEUMATOID ARTHRITIS
     Route: 042
     Dates: start: 20101018
  2. ACTEMRA [Suspect]
     Route: 042
     Dates: start: 20111104
  3. ACTEMRA [Suspect]
     Route: 042
     Dates: start: 20111130
  4. ACTEMRA [Suspect]
     Route: 042
     Dates: start: 20120403
  5. ACTEMRA [Suspect]
     Route: 042
     Dates: start: 20120528
  6. ACTEMRA [Suspect]
     Route: 042
     Dates: start: 20120626
  7. ACTEMRA [Suspect]
     Route: 042
     Dates: start: 20120723
  8. ACTEMRA [Suspect]
     Route: 042
     Dates: start: 20121105
  9. ACTEMRA [Suspect]
     Route: 042
     Dates: start: 20130318
  10. ACTEMRA [Suspect]
     Route: 042
     Dates: start: 20130708
  11. RITUXAN [Suspect]
     Indication: RHEUMATOID ARTHRITIS
     Dosage: FREQUENCY:  DAY 1 AND DAY 15
     Route: 042
     Dates: start: 20090707, end: 20100412
  12. CORTEF [Suspect]
     Indication: PRODUCT USED FOR UNKNOWN INDICATION
     Route: 065
     Dates: start: 201308
  13. VIMOVO [Suspect]
     Indication: PRODUCT USED FOR UNKNOWN INDICATION
     Route: 065
     Dates: start: 201308
  14. DIPHENHYDRAMINE HCL [Concomitant]
     Indication: PREMEDICATION
     Route: 048
     Dates: start: 20090707, end: 20100412
  15. ACETAMINOPHEN [Concomitant]
     Indication: PREMEDICATION
     Route: 048
     Dates: start: 20090707, end: 20100412
  16. METHYLPREDNISOLONE [Concomitant]
     Indication: PREMEDICATION
     Route: 042
     Dates: start: 20090707, end: 20100412
  17. METHYLPREDNISOLONE [Concomitant]
     Route: 042
  18. PREDNISONE [Concomitant]
     Dosage: 1/2 PILL,
     Route: 065

REACTIONS (7)
  - Pulmonary oedema [Not Recovered/Not Resolved]
  - Excessive skin [Unknown]
  - Adrenal disorder [Not Recovered/Not Resolved]
  - Fatigue [Not Recovered/Not Resolved]
  - Dyspnoea [Not Recovered/Not Resolved]
  - Weight decreased [Unknown]
  - Arthralgia [Not Recovered/Not Resolved]
